FAERS Safety Report 4998373-4 (Version None)
Quarter: 2006Q2

REPORT INFORMATION
  Report Type: 
  Country: None (occurrence: None)
  Receive Date: 20060508
  Receipt Date: 20060427
  Transmission Date: 20061013
  Serious: Yes (Disabling, Other)
  Sender: FDA-Public Use
  Company Number: 2006057542

PATIENT
  Age: 58 Year
  Sex: Female

DRUGS (4)
  1. NEURONTIN [Suspect]
     Indication: NEURALGIA
     Dosage: 300 MG (300 MG, 1 IN 1 D), ORAL
     Route: 048
     Dates: start: 20060223
  2. WARFARIN SODIUM [Suspect]
     Indication: DEEP VEIN THROMBOSIS
     Dosage: UNKNOWN, ORAL
     Route: 048
     Dates: start: 20051001
  3. ORAMORPH SR [Concomitant]
  4. CO-DANTHRAMER (DANTRON, POLOXAMER) [Concomitant]

REACTIONS (3)
  - DEEP VEIN THROMBOSIS [None]
  - DIARRHOEA [None]
  - INTERNATIONAL NORMALISED RATIO INCREASED [None]
